FAERS Safety Report 4909000-6 (Version None)
Quarter: 2006Q1

REPORT INFORMATION
  Report Type: 
  Country: None (occurrence: None)
  Receive Date: 20060213
  Receipt Date: 20060202
  Transmission Date: 20060701
  Serious: Yes (Hospitalization)
  Sender: FDA-Public Use
  Company Number: GB-JNJFOC-20060200949

PATIENT
  Sex: Female

DRUGS (12)
  1. REMICADE [Suspect]
     Indication: DRUG USE FOR UNKNOWN INDICATION
     Dosage: 9 INFUSIONS
     Route: 042
  2. TRAMADOL [Suspect]
     Indication: DRUG USE FOR UNKNOWN INDICATION
     Route: 065
  3. METHOTREXATE [Concomitant]
     Route: 065
  4. DICLOFENAC [Concomitant]
     Route: 065
  5. FOLIC ACID [Concomitant]
     Route: 065
  6. LANZOPRAZOLE [Concomitant]
     Route: 065
  7. FOSAMAX [Concomitant]
     Route: 065
  8. CO CODAMOL [Concomitant]
     Route: 065
  9. CO CODAMOL [Concomitant]
     Route: 065
  10. CO CODAMOL [Concomitant]
     Route: 065
  11. CALCICHEW [Concomitant]
     Route: 065
  12. TOMOZEPANE [Concomitant]
     Dosage: 1 PER NIGHT

REACTIONS (1)
  - PERITONEAL TUBERCULOSIS [None]
